FAERS Safety Report 25404139 (Version 1)
Quarter: 2025Q2

REPORT INFORMATION
  Report Type: Spontaneous
  Country: US (occurrence: US)
  Receive Date: 20250606
  Receipt Date: 20250606
  Transmission Date: 20250716
  Serious: No
  Sender: SANOFI AVENTIS
  Company Number: US-SA-2025SA159203

PATIENT
  Age: 25 Year
  Sex: Male

DRUGS (5)
  1. ALPROLIX [Suspect]
     Active Substance: EFTRENONACOG ALFA
     Dosage: 4000 U (3600-4400), QW FOR ACUTE BLEED
     Route: 042
     Dates: start: 202405
  2. ALPROLIX [Suspect]
     Active Substance: EFTRENONACOG ALFA
     Dosage: 4000 U (3600-4400), QW FOR ACUTE BLEED
     Route: 042
     Dates: start: 202405
  3. ALPROLIX [Suspect]
     Active Substance: EFTRENONACOG ALFA
     Dosage: 4000 U (3600-4400), QOD AS NEEDED FOR ACUTE BLEED
     Route: 042
     Dates: start: 202405
  4. ALPROLIX [Suspect]
     Active Substance: EFTRENONACOG ALFA
     Dosage: 4000 U (3600-4400), QOD AS NEEDED FOR ACUTE BLEED
     Route: 042
     Dates: start: 202405
  5. SODIUM CHLORIDE [Concomitant]
     Active Substance: SODIUM CHLORIDE

REACTIONS (1)
  - Haemorrhage [Recovered/Resolved]

NARRATIVE: CASE EVENT DATE: 20250501
